FAERS Safety Report 10935702 (Version 2)
Quarter: 2015Q2

REPORT INFORMATION
  Report Type: Spontaneous
  Country: US (occurrence: US)
  Receive Date: 20150320
  Receipt Date: 20150406
  Transmission Date: 20150821
  Serious: Yes (Death, Hospitalization, Other)
  Sender: FDA-Public Use
  Company Number: US-JNJFOC-20150310330

PATIENT
  Sex: Male

DRUGS (8)
  1. TRENTAL [Concomitant]
     Active Substance: PENTOXIFYLLINE
     Route: 065
  2. METOPROLOL [Concomitant]
     Active Substance: METOPROLOL
     Route: 065
  3. ALLOPURINOL. [Concomitant]
     Active Substance: ALLOPURINOL
     Route: 065
  4. SINGULAIR [Concomitant]
     Active Substance: MONTELUKAST SODIUM
     Route: 065
  5. XARELTO [Suspect]
     Active Substance: RIVAROXABAN
     Indication: DEEP VEIN THROMBOSIS
     Route: 048
     Dates: start: 20150130
  6. METFORMIN [Concomitant]
     Active Substance: METFORMIN HYDROCHLORIDE
     Route: 065
  7. LASIX [Concomitant]
     Active Substance: FUROSEMIDE
     Route: 065
  8. POTASSIUM [Concomitant]
     Active Substance: POTASSIUM
     Route: 065

REACTIONS (10)
  - Wheelchair user [Unknown]
  - Haemoptysis [Fatal]
  - Haemorrhage [Fatal]
  - Hospitalisation [Unknown]
  - Hyperkalaemia [Fatal]
  - Sepsis [Fatal]
  - Renal failure [Fatal]
  - Haematemesis [Fatal]
  - Haematochezia [Fatal]
  - Unevaluable event [Fatal]
